FAERS Safety Report 8616009-8 (Version None)
Quarter: 2012Q3

REPORT INFORMATION
  Report Type: 
  Country: None (occurrence: None)
  Receive Date: 20120823
  Receipt Date: 20120815
  Transmission Date: 20120928
  Serious: Yes (Hospitalization, Disabling, Other)
  Sender: FDA-Public Use
  Company Number: US-MERCK-1206USA04644

PATIENT

DRUGS (4)
  1. PREVACID [Concomitant]
     Dosage: UNK
     Dates: start: 19930101
  2. MULTI-VITAMINS [Concomitant]
     Dosage: UNK
     Dates: start: 20000101
  3. FOSAMAX [Suspect]
     Indication: OSTEOPOROSIS
     Route: 048
  4. FOSAMAX [Suspect]
     Indication: OSTEOPENIA

REACTIONS (7)
  - STRESS FRACTURE [None]
  - BLOOD CHOLESTEROL INCREASED [None]
  - DIABETES MELLITUS [None]
  - INTRAMEDULLARY ROD INSERTION [None]
  - LOW TURNOVER OSTEOPATHY [None]
  - OSTEOPOROSIS [None]
  - FEMUR FRACTURE [None]
